FAERS Safety Report 9641640 (Version 2)
Quarter: 2014Q3

REPORT INFORMATION
  Report Type: Report from Study
  Country: US (occurrence: US)
  Receive Date: 20131023
  Receipt Date: 20140814
  Transmission Date: 20150326
  Serious: Yes (Hospitalization)
  Sender: FDA-Public Use
  Company Number: US-VIIV HEALTHCARE LIMITED-B0933866A

PATIENT
  Age: 55 Year
  Sex: Male
  Weight: 73.6 kg

DRUGS (22)
  1. LIDODERM [Concomitant]
     Active Substance: LIDOCAINE
     Dates: start: 20110316
  2. CLONIDINE. [Concomitant]
     Active Substance: CLONIDINE
     Dates: start: 20110208
  3. LEVOTHYROXINE [Concomitant]
     Active Substance: LEVOTHYROXINE
     Dates: start: 20101019
  4. PRAVACHOL [Concomitant]
     Active Substance: PRAVASTATIN SODIUM
     Dates: start: 20120329
  5. TESSALON [Concomitant]
     Active Substance: BENZONATATE
     Dates: start: 20121112
  6. COMBIVENT [Concomitant]
     Active Substance: ALBUTEROL SULFATE\IPRATROPIUM BROMIDE
     Dates: start: 20130308
  7. RALTEGRAVIR [Concomitant]
     Active Substance: RALTEGRAVIR
     Indication: HIV INFECTION
     Route: 048
  8. MARAVIROC [Suspect]
     Active Substance: MARAVIROC
     Indication: HIV INFECTION
     Dosage: 600MG TWICE PER DAY
     Route: 048
     Dates: start: 20110111
  9. AMITRIPTYLINE [Concomitant]
     Active Substance: AMITRIPTYLINE
     Dates: start: 20110208
  10. CALCIUM CARBONATE. [Concomitant]
     Active Substance: CALCIUM CARBONATE
     Dates: start: 20110210
  11. LASIX [Concomitant]
     Active Substance: FUROSEMIDE
     Dates: start: 20130201
  12. DEPO-TESTOSTERONE [Concomitant]
     Active Substance: TESTOSTERONE CYPIONATE
     Dates: start: 20110208
  13. TUSSIONEX PENNKINETIC [Concomitant]
     Active Substance: CHLORPHENIRAMINE\HYDROCODONE
     Dates: start: 20121112
  14. CIALIS [Concomitant]
     Active Substance: TADALAFIL
     Dates: start: 20110208
  15. OMEPRAZOLE. [Concomitant]
     Active Substance: OMEPRAZOLE
     Dates: start: 20120824
  16. REMERON [Concomitant]
     Active Substance: MIRTAZAPINE
     Dates: start: 20080303
  17. FIORICET [Concomitant]
     Active Substance: ACETAMINOPHEN\BUTALBITAL\CAFFEINE
     Dates: start: 20111003
  18. MELOXICAM. [Concomitant]
     Active Substance: MELOXICAM
     Dates: start: 20111228
  19. POTASSIUM [Concomitant]
     Active Substance: POTASSIUM
     Dates: start: 20110101
  20. ACETAMINOPHEN. [Concomitant]
     Active Substance: ACETAMINOPHEN
     Dates: start: 20110210
  21. LEXAPRO [Concomitant]
     Active Substance: ESCITALOPRAM OXALATE
     Dates: start: 20120824
  22. VITAMIN D [Concomitant]
     Active Substance: CHOLECALCIFEROL
     Dates: start: 20110221

REACTIONS (1)
  - Acute myocardial infarction [Recovered/Resolved with Sequelae]

NARRATIVE: CASE EVENT DATE: 20131002
